FAERS Safety Report 8591772-3 (Version None)
Quarter: 2012Q3

REPORT INFORMATION
  Report Type: 
  Country: None (occurrence: None)
  Receive Date: 20120803
  Receipt Date: 20120803
  Transmission Date: 20120928
  Serious: No
  Sender: FDA-Public Use
  Company Number: None

PATIENT
  Sex: Female

DRUGS (1)
  1. SENSIPAR [Suspect]
     Indication: RENAL OSTEODYSTROPHY
     Dosage: 30MG DAILY PO
     Route: 048
     Dates: start: 20120504, end: 20120701

REACTIONS (1)
  - EYE SWELLING [None]
